FAERS Safety Report 21119028 (Version 1)
Quarter: 2022Q3

REPORT INFORMATION
  Report Type: Spontaneous
  Country: IT (occurrence: IT)
  Receive Date: 20220722
  Receipt Date: 20220722
  Transmission Date: 20221026
  Serious: Yes (Hospitalization)
  Sender: FDA-Public Use
  Company Number: None

PATIENT
  Age: 70 Year
  Sex: Male

DRUGS (5)
  1. NEBIVOLOL [Interacting]
     Active Substance: NEBIVOLOL
     Indication: Product used for unknown indication
     Dosage: 2.5 MG
     Route: 065
  2. ATORVASTATIN [Interacting]
     Active Substance: ATORVASTATIN
     Indication: Product used for unknown indication
     Dosage: UNK
     Route: 065
  3. RAMIPRIL [Interacting]
     Active Substance: RAMIPRIL
     Indication: Product used for unknown indication
     Dosage: UNK
     Route: 065
  4. RIVASTIGMINE [Interacting]
     Active Substance: RIVASTIGMINE
     Indication: Parkinson^s disease
     Dosage: PAZIENTE IN TERAPIA DA UN MESE CON RIVASTIGMINA 1.5 MG COMPRESSA, POI AUMENTATA A 3 MG. IL 23/05/202
     Route: 062
     Dates: start: 20220601, end: 20220626
  5. SINEMET [Interacting]
     Active Substance: CARBIDOPA\LEVODOPA
     Indication: Product used for unknown indication
     Dosage: 100 X 4 VOLTE DIE
     Route: 048

REACTIONS (4)
  - Metabolic acidosis [Recovered/Resolved]
  - Hyperventilation [Recovered/Resolved]
  - Blood cholinesterase decreased [Unknown]
  - Hyperhidrosis [Recovering/Resolving]

NARRATIVE: CASE EVENT DATE: 20220623
